FAERS Safety Report 25646942 (Version 1)
Quarter: 2025Q3

REPORT INFORMATION
  Report Type: Spontaneous
  Country: US (occurrence: US)
  Receive Date: 20250805
  Receipt Date: 20250805
  Transmission Date: 20251021
  Serious: Yes (Other)
  Sender: TEVA
  Company Number: US-TEVA-VS-3357184

PATIENT

DRUGS (2)
  1. NORETHINDRONE AND ETHINYL ESTRADIOL [Suspect]
     Active Substance: ETHINYL ESTRADIOL\NORETHINDRONE
     Indication: Contraception
     Route: 048
  2. BERBERINE [Concomitant]
     Active Substance: BERBERINE
     Indication: Weight decreased

REACTIONS (1)
  - Polycystic ovarian syndrome [Unknown]
